FAERS Safety Report 18902629 (Version 8)
Quarter: 2021Q3

REPORT INFORMATION
  Report Type: Spontaneous
  Country: JP (occurrence: JP)
  Receive Date: 20210216
  Receipt Date: 20210709
  Transmission Date: 20211014
  Serious: Yes (Life-Threatening, Hospitalization, Other)
  Sender: FDA-Public Use
  Company Number: JP-BRISTOL-MYERS SQUIBB COMPANY-BMS-2021-013467

PATIENT
  Age: 63 Year
  Sex: Female
  Weight: 53 kg

DRUGS (5)
  1. YERVOY [Suspect]
     Active Substance: IPILIMUMAB
     Indication: NON-SMALL CELL LUNG CANCER RECURRENT
     Dosage: 1 MILLIGRAM/KILOGRAM, Q6WK
     Route: 041
     Dates: start: 20210118
  2. CISPLATIN. [Suspect]
     Active Substance: CISPLATIN
     Indication: NON-SMALL CELL LUNG CANCER RECURRENT
     Dosage: UNK
     Route: 041
     Dates: start: 20210118
  3. THYRADIN S [Concomitant]
     Active Substance: LEVOTHYROXINE SODIUM
     Indication: HYPOTHYROIDISM
     Route: 048
  4. PEMETREXED. [Suspect]
     Active Substance: PEMETREXED
     Indication: NON-SMALL CELL LUNG CANCER RECURRENT
     Dosage: UNK
     Route: 041
     Dates: start: 20210118
  5. OPDIVO [Suspect]
     Active Substance: NIVOLUMAB
     Indication: NON-SMALL CELL LUNG CANCER RECURRENT
     Dosage: 360 MILLIGRAM, Q3WK
     Route: 041
     Dates: start: 20210118

REACTIONS (10)
  - Respiratory failure [Recovered/Resolved]
  - C-reactive protein increased [Unknown]
  - Hypothyroidism [Recovered/Resolved]
  - Pneumonia bacterial [Recovered/Resolved]
  - Pyrexia [Recovered/Resolved]
  - Interstitial lung disease [Recovered/Resolved]
  - Infection [Recovered/Resolved]
  - Adrenal insufficiency [Recovered/Resolved]
  - Myelosuppression [Unknown]
  - Nausea [Unknown]

NARRATIVE: CASE EVENT DATE: 20210324
